FAERS Safety Report 7466733-8 (Version None)
Quarter: 2011Q2

REPORT INFORMATION
  Report Type: 
  Country: None (occurrence: None)
  Receive Date: 20110509
  Receipt Date: 20100824
  Transmission Date: 20111010
  Serious: No
  Sender: FDA-Public Use
  Company Number: US-ALEXION-A201001075

PATIENT
  Sex: Female

DRUGS (2)
  1. IRON [Concomitant]
  2. SOLIRIS [Suspect]
     Indication: PAROXYSMAL NOCTURNAL HAEMOGLOBINURIA
     Dosage: 900 MG, UNK
     Route: 042

REACTIONS (4)
  - CHROMATURIA [None]
  - ABDOMINAL PAIN [None]
  - HAEMOGLOBINURIA [None]
  - MYALGIA [None]
